FAERS Safety Report 9523880 (Version 1)
Quarter: 2013Q1

REPORT INFORMATION
  Report Type: Spontaneous
  Country: US (occurrence: None)
  Receive Date: 20130305
  Receipt Date: 20130305
  Transmission Date: 20140127
  Serious: Yes (Other)
  Sender: FDA-Public Use
  Company Number: 163-21880-12020339

PATIENT
  Age: 70 Year
  Sex: Female

DRUGS (1)
  1. REVLIMID [Suspect]
     Indication: MYELODYSPLASTIC SYNDROME
     Dosage: 10 MG, 1 IN 1 D, PO
     Route: 048
     Dates: start: 20111225

REACTIONS (14)
  - Myelodysplastic syndrome transformation [None]
  - Acute myeloid leukaemia [None]
  - Nervousness [None]
  - Nausea [None]
  - Back pain [None]
  - Decreased appetite [None]
  - Ear infection [None]
  - Weight decreased [None]
  - Vomiting [None]
  - Constipation [None]
  - Fatigue [None]
  - Myalgia [None]
  - Asthenia [None]
  - Sinusitis [None]
